FAERS Safety Report 8985444 (Version 4)
Quarter: 2013Q1

REPORT INFORMATION
  Report Type: Spontaneous
  Country: US (occurrence: US)
  Receive Date: 20121226
  Receipt Date: 20130116
  Transmission Date: 20140127
  Serious: Yes (Other)
  Sender: FDA-Public Use
  Company Number: US-JNJFOC-20121208963

PATIENT
  Sex: 0

DRUGS (1)
  1. XARELTO [Suspect]
     Indication: THROMBOSIS PROPHYLAXIS
     Route: 048
     Dates: start: 201212

REACTIONS (3)
  - Haemoglobin decreased [Unknown]
  - Peritoneal haemorrhage [Recovered/Resolved]
  - Neoplasm [Unknown]
